FAERS Safety Report 5873018-X (Version None)
Quarter: 2008Q3

REPORT INFORMATION
  Report Type: 
  Country: None (occurrence: None)
  Receive Date: 20080905
  Receipt Date: 20080828
  Transmission Date: 20090109
  Serious: Yes (Other)
  Sender: FDA-Public Use
  Company Number: JP-PFIZER INC-2008073179

PATIENT
  Age: 82 Year
  Sex: Female

DRUGS (2)
  1. ZOLOFT [Suspect]
     Indication: DEPRESSIVE SYMPTOM
     Route: 048
  2. PLETAL [Suspect]
     Route: 048

REACTIONS (1)
  - PETIT MAL EPILEPSY [None]
